FAERS Safety Report 25218146 (Version 2)
Quarter: 2025Q2

REPORT INFORMATION
  Report Type: Spontaneous
  Country: JP (occurrence: JP)
  Receive Date: 20250421
  Receipt Date: 20250515
  Transmission Date: 20250716
  Serious: Yes (Death, Other)
  Sender: ALEXION PHARMACEUTICALS
  Company Number: JP-ASTRAZENECA-250027757_013120_P_1

PATIENT
  Age: 84 Year
  Weight: 54 kg

DRUGS (8)
  1. DURVALUMAB [Suspect]
     Active Substance: DURVALUMAB
     Indication: Hepatocellular carcinoma
     Dosage: 1500 MILLIGRAM, Q4W
  2. DURVALUMAB [Suspect]
     Active Substance: DURVALUMAB
     Dosage: 1500 MILLIGRAM, Q4W
  3. TREMELIMUMAB [Suspect]
     Active Substance: TREMELIMUMAB
     Indication: Hepatocellular carcinoma
  4. TREMELIMUMAB [Suspect]
     Active Substance: TREMELIMUMAB
  5. AMLODIPINE [Concomitant]
     Active Substance: AMLODIPINE BESYLATE
     Indication: Hypertension
  6. Kaywan [Concomitant]
     Indication: Protein induced by vitamin K absence or antagonist II increased
  7. ELDECALCITOL [Concomitant]
     Active Substance: ELDECALCITOL
     Indication: Osteoporosis
  8. RALOXIFENE HYDROCHLORIDE [Concomitant]
     Active Substance: RALOXIFENE HYDROCHLORIDE
     Indication: Osteoporosis

REACTIONS (10)
  - Myocarditis [Fatal]
  - Rhabdomyolysis [Fatal]
  - Liver disorder [Fatal]
  - Renal disorder [Fatal]
  - Lactic acidosis [Fatal]
  - Altered state of consciousness [Unknown]
  - Immune-mediated adverse reaction [Unknown]
  - Myasthenia gravis [Unknown]
  - Cytokine storm [Unknown]
  - Multiple organ dysfunction syndrome [Unknown]
